FAERS Safety Report 7593309-4 (Version None)
Quarter: 2011Q3

REPORT INFORMATION
  Report Type: 
  Country: None (occurrence: None)
  Receive Date: 20110706
  Receipt Date: 20110624
  Transmission Date: 20111222
  Serious: Yes (Other)
  Sender: FDA-Public Use
  Company Number: US-BAYER-2011-023804

PATIENT
  Age: 29 Year
  Sex: Female
  Weight: 59 kg

DRUGS (3)
  1. IBUPROFEN [Concomitant]
  2. ADVIL LIQUI-GELS [Concomitant]
  3. YAZ [Suspect]
     Dosage: UNK
     Dates: start: 19980101, end: 20090101

REACTIONS (2)
  - GALLBLADDER DISORDER [None]
  - PAIN [None]
